FAERS Safety Report 5099342-9 (Version None)
Quarter: 2006Q3

REPORT INFORMATION
  Report Type: 
  Country: None (occurrence: None)
  Receive Date: 20060727
  Receipt Date: 20060519
  Transmission Date: 20061208
  Serious: No
  Sender: FDA-Public Use
  Company Number: FACT0600257

PATIENT
  Age: 47 Year
  Sex: Female

DRUGS (6)
  1. FACTIVE [Suspect]
     Indication: RESPIRATORY TRACT INFECTION BACTERIAL
     Dosage: 320 MG, QD, ORAL
     Route: 048
  2. HYROXYZINE (HYDROXYZINE) [Concomitant]
  3. ACETAMINOPHEN [Concomitant]
  4. ASMANEX TWISTHALER [Concomitant]
  5. ENTEX PSE (GUAIFENESIN, PSEUDOEPHEDRINE HYDROCHLORIDE) [Concomitant]
  6. ALBUTEROL [Concomitant]

REACTIONS (1)
  - RASH GENERALISED [None]
